FAERS Safety Report 6724411-4 (Version None)
Quarter: 2010Q2

REPORT INFORMATION
  Report Type: 
  Country: None (occurrence: None)
  Receive Date: 20100513
  Receipt Date: 20100326
  Transmission Date: 20101027
  Serious: Yes (Death)
  Sender: FDA-Public Use
  Company Number: US-PFIZER INC-2010000030

PATIENT
  Sex: Female
  Weight: 54.422 kg

DRUGS (2)
  1. CAMPTOSAR [Suspect]
     Indication: SMALL CELL CARCINOMA
     Dosage: 40 MG (160 WEEKLY) NO DOSE GIVEN
  2. PREDNISONE [Concomitant]
     Dosage: 40 MG, DAILY
     Dates: start: 20091009

REACTIONS (1)
  - DEATH [None]
